FAERS Safety Report 22372054 (Version 1)
Quarter: 2023Q2

REPORT INFORMATION
  Report Type: Spontaneous
  Country: IN (occurrence: IN)
  Receive Date: 20230526
  Receipt Date: 20230526
  Transmission Date: 20230722
  Serious: Yes (Other)
  Sender: FDA-Public Use
  Company Number: IN-MYLANLABS-2023M1054860

PATIENT
  Age: 46 Year
  Sex: Female

DRUGS (1)
  1. EFAVIRENZ\LAMIVUDINE\TENOFOVIR DISOPROXIL FUMARATE [Suspect]
     Active Substance: EFAVIRENZ\LAMIVUDINE\TENOFOVIR DISOPROXIL FUMARATE
     Indication: HIV infection
     Dosage: UNK
     Route: 065

REACTIONS (8)
  - Renal tubular acidosis [Recovering/Resolving]
  - Hypokalaemia [Unknown]
  - Hypophosphataemic osteomalacia [Recovering/Resolving]
  - Metabolic acidosis [Unknown]
  - Osteopenia [Unknown]
  - Osteoporosis [Unknown]
  - Glycosuria [Unknown]
  - Hypouricaemia [Unknown]
